FAERS Safety Report 4692208-5 (Version None)
Quarter: 2005Q2

REPORT INFORMATION
  Report Type: 
  Country: None (occurrence: None)
  Receive Date: 20050614
  Receipt Date: 20050601
  Transmission Date: 20051028
  Serious: Yes (Hospitalization)
  Sender: FDA-Public Use
  Company Number: 2005083319

PATIENT
  Age: 63 Year
  Sex: Male

DRUGS (8)
  1. CAMPTOSAR [Suspect]
     Indication: ADENOCARCINOMA
     Dosage: 240 MG (CYCLIC DAY 1) INTRAVENOUS
     Route: 042
     Dates: start: 20050330, end: 20050330
  2. XELODA [Suspect]
     Indication: ADENOCARCINOMA
     Dosage: 240 MG (CYCLIC) ORAL
     Route: 048
     Dates: start: 20050330, end: 20050330
  3. ERBITUX (CETUXIMAB) [Suspect]
     Indication: ADENOCARCINOMA
     Dosage: 500 MG (INTERVAL: DAY 1, 8, 15 WEEKLY) INTRAVENOUS
     Route: 042
     Dates: start: 20050330, end: 20050413
  4. GLYBURIDE [Concomitant]
  5. BISOPROLOL FUMARATE [Concomitant]
  6. MOLSIDOMINE [Concomitant]
  7. RAMIPRIL [Concomitant]
  8. CLOPIDOGREL HYDROGENOSULFATE (CLOPIDOGREL SULFATE) [Concomitant]

REACTIONS (12)
  - ASPARTATE AMINOTRANSFERASE INCREASED [None]
  - BLOOD LACTATE DEHYDROGENASE INCREASED [None]
  - DEPRESSED LEVEL OF CONSCIOUSNESS [None]
  - DIARRHOEA [None]
  - HYPOCALCAEMIA [None]
  - HYPOGLYCAEMIA [None]
  - HYPONATRAEMIA [None]
  - HYPOPHOSPHATAEMIA [None]
  - NAUSEA [None]
  - OEDEMA PERIPHERAL [None]
  - RHABDOMYOLYSIS [None]
  - VOMITING [None]
